FAERS Safety Report 7659182-0 (Version None)
Quarter: 2011Q3

REPORT INFORMATION
  Report Type: 
  Country: None (occurrence: None)
  Receive Date: 20110805
  Receipt Date: 20110727
  Transmission Date: 20111222
  Serious: Yes (Hospitalization)
  Sender: FDA-Public Use
  Company Number: GB-GLAXOSMITHKLINE-B0737260A

PATIENT
  Sex: Female

DRUGS (5)
  1. VENTOLIN DS [Concomitant]
     Dates: start: 19980101
  2. AMLODIPINE [Concomitant]
     Dates: start: 20040101
  3. MABTHERA [Suspect]
     Indication: CHRONIC LYMPHOCYTIC LEUKAEMIA
     Dosage: 950MG PER DAY
     Route: 042
     Dates: start: 20080702
  4. CHLORAMBUCIL [Suspect]
     Indication: CHRONIC LYMPHOCYTIC LEUKAEMIA
     Dosage: 20MG PER DAY
     Route: 048
     Dates: start: 20080702
  5. SERETIDE [Concomitant]
     Dates: start: 19980101

REACTIONS (1)
  - CELLULITIS [None]
